FAERS Safety Report 17942969 (Version 1)
Quarter: 2020Q2

REPORT INFORMATION
  Report Type: Spontaneous
  Country: US (occurrence: US)
  Receive Date: 20200625
  Receipt Date: 20200625
  Transmission Date: 20200714
  Serious: Yes (Life-Threatening, Other)
  Sender: FDA-Public Use
  Company Number: None

PATIENT
  Age: 76 Year
  Sex: Male
  Weight: 93.1 kg

DRUGS (22)
  1. ALBUTEROL. [Concomitant]
     Active Substance: ALBUTEROL
  2. AZITHROMYCIN ANHYDROUS. [Concomitant]
     Active Substance: AZITHROMYCIN ANHYDROUS
  3. HUMULIN N [Concomitant]
     Active Substance: INSULIN HUMAN
  4. HEPARIN [Concomitant]
     Active Substance: HEPARIN SODIUM
  5. METHYLPREDNISOLONE. [Concomitant]
     Active Substance: METHYLPREDNISOLONE
  6. REMDESIVIR. [Suspect]
     Active Substance: REMDESIVIR
     Indication: COVID-19
     Route: 042
     Dates: start: 20200620, end: 20200625
  7. EPHINEPHRINE [Concomitant]
     Active Substance: EPINEPHRINE
  8. FUROSEMIDE. [Concomitant]
     Active Substance: FUROSEMIDE
  9. HUMULIN R [Concomitant]
     Active Substance: INSULIN HUMAN
  10. ATROVENT HFA [Concomitant]
     Active Substance: IPRATROPIUM BROMIDE
  11. ACETAMINOPHEN. [Concomitant]
     Active Substance: ACETAMINOPHEN
  12. FENTANYL. [Concomitant]
     Active Substance: FENTANYL
  13. MEROPENEM. [Concomitant]
     Active Substance: MEROPENEM
  14. MIDAZOLAM. [Concomitant]
     Active Substance: MIDAZOLAM
  15. MELATONIN [Concomitant]
     Active Substance: MELATONIN
  16. AMIODARONE [Concomitant]
     Active Substance: AMIODARONE
  17. ATORVASTATIN [Concomitant]
     Active Substance: ATORVASTATIN
  18. DOCUSATE SODIUM. [Concomitant]
     Active Substance: DOCUSATE SODIUM
  19. FAMOTIDINE. [Concomitant]
     Active Substance: FAMOTIDINE
  20. ASPIRIN. [Concomitant]
     Active Substance: ASPIRIN
  21. GUAIFENESIN. [Concomitant]
     Active Substance: GUAIFENESIN
  22. LACTULOSE. [Concomitant]
     Active Substance: LACTULOSE

REACTIONS (6)
  - Multiple organ dysfunction syndrome [None]
  - Tachycardia [None]
  - Disease progression [None]
  - Hepatic function abnormal [None]
  - Renal impairment [None]
  - Hypotension [None]

NARRATIVE: CASE EVENT DATE: 20200625
